FAERS Safety Report 23167811 (Version 1)
Quarter: 2023Q4

REPORT INFORMATION
  Report Type: Report from Study
  Country: US (occurrence: US)
  Receive Date: 20231109
  Receipt Date: 20231109
  Transmission Date: 20240110
  Serious: Yes (Death)
  Sender: FDA-Public Use
  Company Number: US-PFIZER INC-202300357119

PATIENT
  Sex: Female

DRUGS (4)
  1. GEMCITABINE HYDROCHLORIDE [Suspect]
     Active Substance: GEMCITABINE HYDROCHLORIDE
     Indication: Soft tissue sarcoma
     Dosage: ON DAYS 1 AND 8
     Route: 042
  2. DOCETAXEL [Suspect]
     Active Substance: DOCETAXEL\DOCETAXEL ANHYDROUS
     Indication: Soft tissue sarcoma
     Dosage: ON DAY 8
     Route: 042
  3. OLARATUMAB [Suspect]
     Active Substance: OLARATUMAB
     Indication: Soft tissue sarcoma
     Dosage: CYCLE 1
     Route: 042
  4. OLARATUMAB [Suspect]
     Active Substance: OLARATUMAB
     Dosage: OTHER CYCLES ON DAYS 1 AND 8
     Route: 042

REACTIONS (1)
  - Hepatic failure [Fatal]
